FAERS Safety Report 15224134 (Version 1)
Quarter: 2018Q3

REPORT INFORMATION
  Report Type: Spontaneous
  Country: US (occurrence: US)
  Receive Date: 20180731
  Receipt Date: 20180731
  Transmission Date: 20181010
  Serious: No
  Sender: FDA-Public Use
  Company Number: US-009507513-1807USA013257

PATIENT
  Age: 56 Year
  Sex: Male

DRUGS (4)
  1. SINGULAIR [Suspect]
     Active Substance: MONTELUKAST SODIUM
     Indication: SYSTEMIC MASTOCYTOSIS
     Dosage: 10 MG/D
     Route: 048
  2. CROMOLYN [Concomitant]
     Active Substance: CROMOLYN
     Indication: SYSTEMIC MASTOCYTOSIS
     Dosage: 200 MG, FOUR TIMES DAILY
  3. HYDROXYUREA. [Concomitant]
     Active Substance: HYDROXYUREA
     Indication: SYSTEMIC MASTOCYTOSIS
     Dosage: 1000 MG/D
  4. OMALIZUMAB. [Concomitant]
     Active Substance: OMALIZUMAB
     Indication: SYSTEMIC MASTOCYTOSIS

REACTIONS (1)
  - Product use in unapproved indication [Unknown]
